FAERS Safety Report 7788996-1 (Version None)
Quarter: 2011Q3

REPORT INFORMATION
  Report Type: 
  Country: None (occurrence: None)
  Receive Date: 20110930
  Receipt Date: 20110916
  Transmission Date: 20111222
  Serious: Yes (Other)
  Sender: FDA-Public Use
  Company Number: PHHY2011BR83010

PATIENT
  Age: 65 Year
  Sex: Male

DRUGS (10)
  1. GLIMEPIRIDE [Concomitant]
     Dosage: 2 MG
  2. RASILEZ [Suspect]
     Dosage: 300 MG, UNK
  3. ACARBOSE [Concomitant]
     Dosage: 50 MG, BID
  4. GLIMEPIRIDE [Concomitant]
     Dosage: 04 MG
  5. SIMVASTATIN [Concomitant]
     Dosage: 10 MG
  6. METFORMIN HCL [Suspect]
     Dosage: 850 MG, BID
  7. MANIDIPINE [Concomitant]
     Dosage: 10 MG
  8. TICLOPIDINE HCL [Concomitant]
     Dosage: 250 MG
  9. ATENOLOL [Concomitant]
     Dosage: 50 MG
  10. DIOVAN [Suspect]
     Dosage: 320 MG, UNK

REACTIONS (4)
  - VENTRICULAR ARRHYTHMIA [None]
  - BUNDLE BRANCH BLOCK LEFT [None]
  - BLOOD GLUCOSE INCREASED [None]
  - ISCHAEMIA [None]
